FAERS Safety Report 19637824 (Version 1)
Quarter: 2021Q3

REPORT INFORMATION
  Report Type: Spontaneous
  Country: CN (occurrence: CN)
  Receive Date: 20210730
  Receipt Date: 20210730
  Transmission Date: 20211014
  Serious: Yes (Hospitalization, Other)
  Sender: FDA-Public Use
  Company Number: CN-PFIZER INC-202100909940

PATIENT
  Age: 11 Year
  Sex: Male

DRUGS (3)
  1. LORAZEPAM. [Suspect]
     Active Substance: LORAZEPAM
     Indication: ANXIETY
     Dosage: 2 MG, DAILY [0.5 MG BID 7?11 (AS REPORTED), 1 MG QN]
     Route: 048
     Dates: start: 20210630, end: 20210705
  2. ALPRAZOLAM. [Suspect]
     Active Substance: ALPRAZOLAM
     Indication: ANXIETY
     Dosage: 0.8 MG, DAILY ( 0.2 MG QD, 0.6 MG QN)
     Route: 048
     Dates: start: 20210623, end: 20210630
  3. ZOLOFT [Suspect]
     Active Substance: SERTRALINE HYDROCHLORIDE
     Indication: DEPRESSION
     Dosage: 75 MG, 1X/DAY
     Route: 048
     Dates: start: 20210624, end: 20210702

REACTIONS (8)
  - Impulsive behaviour [Recovering/Resolving]
  - Dysphoria [Recovering/Resolving]
  - Condition aggravated [Recovering/Resolving]
  - Off label use [Unknown]
  - Irritability [Recovering/Resolving]
  - Agitation [Recovering/Resolving]
  - Psychomotor hyperactivity [Recovering/Resolving]
  - Intentional self-injury [Recovering/Resolving]

NARRATIVE: CASE EVENT DATE: 20210624
